FAERS Safety Report 4967574-3 (Version None)
Quarter: 2006Q2

REPORT INFORMATION
  Report Type: 
  Country: None (occurrence: None)
  Receive Date: 20060410
  Receipt Date: 20060331
  Transmission Date: 20061013
  Serious: Yes (Hospitalization)
  Sender: FDA-Public Use
  Company Number: FR-JNJFOC-20040909770

PATIENT
  Sex: Male
  Weight: 65 kg

DRUGS (6)
  1. REMICADE [Suspect]
     Dosage: APPROX 10 INFUSIONS
     Route: 042
  2. ROCEPHIN [Concomitant]
  3. ROCEPHIN [Concomitant]
  4. ROCEPHIN [Concomitant]
  5. SOLU-MEDROL [Concomitant]
  6. SOLU-MEDROL [Concomitant]

REACTIONS (1)
  - TUBERCULOSIS [None]
